FAERS Safety Report 21299725 (Version 1)
Quarter: 2022Q3

REPORT INFORMATION
  Report Type: Spontaneous
  Country: US (occurrence: None)
  Receive Date: 20220906
  Receipt Date: 20220906
  Transmission Date: 20221027
  Serious: No
  Sender: FDA-Public Use
  Company Number: None

PATIENT
  Age: 30 Year
  Sex: Female
  Weight: 58.5 kg

DRUGS (5)
  1. BUPROPION XL [Suspect]
     Active Substance: BUPROPION HYDROCHLORIDE
     Indication: Depression
     Dosage: OTHER QUANTITY : 2 TABLET(S);?
     Route: 048
  2. AMITRIPTYLINE [Concomitant]
     Active Substance: AMITRIPTYLINE
  3. EMGALITY [Concomitant]
     Active Substance: GALCANEZUMAB-GNLM
  4. SUMATRIPTAN [Concomitant]
     Active Substance: SUMATRIPTAN
  5. MAGNESIUM [Concomitant]
     Active Substance: MAGNESIUM

REACTIONS (4)
  - Gastrointestinal disorder [None]
  - Abdominal distension [None]
  - Nausea [None]
  - Pain [None]
